FAERS Safety Report 9364857 (Version 1)
Quarter: 2013Q2

REPORT INFORMATION
  Report Type: Report from Study
  Country: US (occurrence: US)
  Receive Date: 20130624
  Receipt Date: 20130624
  Transmission Date: 20140414
  Serious: Yes (Death, Life-Threatening, Hospitalization)
  Sender: FDA-Public Use
  Company Number: US-GLAXOSMITHKLINE-A1026266A

PATIENT
  Age: 66 Year
  Sex: Female
  Weight: 64.5 kg

DRUGS (16)
  1. PAZOPANIB [Suspect]
     Indication: LEIOMYOSARCOMA
     Dosage: 800MG PER DAY
     Route: 048
     Dates: start: 20130521, end: 20130522
  2. GEMCITABINE [Suspect]
     Indication: LEIOMYOSARCOMA
     Dosage: 1600MG CYCLIC
     Route: 042
     Dates: start: 20130520
  3. VITAMIN C [Concomitant]
     Dosage: 1000MG TWICE PER DAY
     Route: 048
  4. ASPIRIN [Concomitant]
     Dosage: 81MG PER DAY
     Route: 048
  5. CALTRATE PLUS [Concomitant]
     Dosage: 1200MG PER DAY
     Route: 048
  6. VITAMIN D [Concomitant]
     Dosage: 1000UNIT PER DAY
     Route: 048
  7. CLONAZEPAM [Concomitant]
     Dosage: 1MG AT NIGHT
     Route: 048
  8. FUROSEMIDE [Concomitant]
     Dosage: 20MG PER DAY
     Route: 048
  9. VICODIN [Concomitant]
     Dosage: 1TAB SIX TIMES PER DAY
     Route: 048
  10. FISH OIL [Concomitant]
     Dosage: 1000MG PER DAY
     Route: 048
  11. OMEPRAZOLE [Concomitant]
     Dosage: 20MG PER DAY
     Route: 048
  12. POTASSIUM [Concomitant]
     Dosage: 750MG TWICE PER DAY
     Route: 048
  13. PRAVASTATIN [Concomitant]
     Dosage: 40MG AT NIGHT
     Route: 048
  14. INDERAL [Concomitant]
     Dosage: 80MG TWICE PER DAY
     Route: 048
  15. SERTRALINE HCL [Concomitant]
     Dosage: 50MG TWICE PER DAY
     Route: 048
  16. TRIAZOLAM [Concomitant]
     Dosage: .125MG AT NIGHT
     Route: 048

REACTIONS (1)
  - Hepatic failure [Fatal]
